FAERS Safety Report 4711693-3 (Version None)
Quarter: 2005Q2

REPORT INFORMATION
  Report Type: 
  Country: None (occurrence: None)
  Receive Date: 20050629
  Receipt Date: 20050428
  Transmission Date: 20051028
  Serious: No
  Sender: FDA-Public Use
  Company Number: 05P-163-0298751-00

PATIENT
  Age: 57 Year
  Sex: Male
  Weight: 78.0187 kg

DRUGS (3)
  1. HUMIRA [Suspect]
     Indication: ANKYLOSING SPONDYLITIS
     Dosage: 40 MG, 1 IN 2 WK, SUBCUTANEOUS
     Route: 058
     Dates: start: 20050301
  2. CELECOXIB [Concomitant]
  3. CIPROFLOXACIN HYDROCHLORIDE [Concomitant]

REACTIONS (1)
  - FATIGUE [None]
